APPROVED DRUG PRODUCT: ETRAFON 2-10
Active Ingredient: AMITRIPTYLINE HYDROCHLORIDE; PERPHENAZINE
Strength: 10MG;2MG **Federal Register determination that product was not discontinued or withdrawn for safety or effectiveness reasons**
Dosage Form/Route: TABLET;ORAL
Application: N014713 | Product #007
Applicant: SCHERING CORP SUB SCHERING PLOUGH CORP
Approved: Approved Prior to Jan 1, 1982 | RLD: No | RS: No | Type: DISCN